FAERS Safety Report 13533146 (Version 1)
Quarter: 2017Q2

REPORT INFORMATION
  Report Type: Spontaneous
  Country: DE (occurrence: DE)
  Receive Date: 20170510
  Receipt Date: 20170510
  Transmission Date: 20170830
  Serious: Yes (Other)
  Sender: FDA-Public Use
  Company Number: DE-JNJFOC-20170507708

PATIENT
  Age: 82 Year
  Sex: Female
  Weight: 91 kg

DRUGS (1)
  1. XARELTO [Suspect]
     Active Substance: RIVAROXABAN
     Indication: ATRIAL FIBRILLATION
     Route: 048

REACTIONS (4)
  - Pain in extremity [Unknown]
  - Contusion [Unknown]
  - Pancreatitis [Unknown]
  - Head discomfort [Unknown]
